FAERS Safety Report 7447001-7 (Version None)
Quarter: 2011Q2

REPORT INFORMATION
  Report Type: 
  Country: None (occurrence: None)
  Receive Date: 20110429
  Receipt Date: 20110425
  Transmission Date: 20111010
  Serious: Yes (Hospitalization)
  Sender: FDA-Public Use
  Company Number: US-ABBOTT-11P-163-0721755-00

PATIENT
  Age: 71 Year
  Sex: Male

DRUGS (5)
  1. METOPROLOL [Concomitant]
     Indication: HYPERTENSION
     Dosage: DAILY
     Route: 048
  2. GLIPIZIDE [Concomitant]
     Indication: DIABETES MELLITUS
     Dosage: DAILY
     Route: 048
  3. INSULIN [Concomitant]
     Indication: DIABETES MELLITUS
     Dosage: DAILY
  4. SIMVASTATIN [Concomitant]
     Indication: BLOOD CHOLESTEROL INCREASED
     Dosage: DAILY
     Route: 048
  5. HUMIRA [Suspect]
     Indication: ANKYLOSING SPONDYLITIS
     Dates: start: 20110310

REACTIONS (7)
  - CONSTIPATION [None]
  - BACK PAIN [None]
  - GALLBLADDER OBSTRUCTION [None]
  - CHOLECYSTITIS ACUTE [None]
  - GALLBLADDER DISORDER [None]
  - CHOLECYSTITIS INFECTIVE [None]
  - MUSCULOSKELETAL CHEST PAIN [None]
